FAERS Safety Report 23762400 (Version 1)
Quarter: 2024Q2

REPORT INFORMATION
  Report Type: Spontaneous
  Country: KR (occurrence: KR)
  Receive Date: 20240419
  Receipt Date: 20240419
  Transmission Date: 20240716
  Serious: Yes (Life-Threatening)
  Sender: FDA-Public Use
  Company Number: KR-TAKEDA-2024TUS035463

PATIENT
  Age: 30 Year
  Sex: Female
  Weight: 69.2 kg

DRUGS (1)
  1. PANTOPRAZOLE SODIUM [Suspect]
     Active Substance: PANTOPRAZOLE SODIUM
     Indication: Pancreatitis acute
     Dosage: 1 DOSAGE FORM, QD (POWDER FOR SOLUTION FOR INJECTION)
     Route: 042
     Dates: start: 20220720, end: 20220720

REACTIONS (3)
  - Dyspnoea [Recovered/Resolved]
  - Flushing [Recovered/Resolved]
  - Off label use [Unknown]

NARRATIVE: CASE EVENT DATE: 20220720
